FAERS Safety Report 6713098-2 (Version None)
Quarter: 2010Q2

REPORT INFORMATION
  Report Type: 
  Country: None (occurrence: None)
  Receive Date: 20100506
  Receipt Date: 20100427
  Transmission Date: 20101027
  Serious: Yes (Hospitalization, Disabling)
  Sender: FDA-Public Use
  Company Number: GB-WYE-G04747209

PATIENT
  Age: 63 Year
  Sex: Male
  Weight: 80 kg

DRUGS (6)
  1. LANSOPRAZOLE [Suspect]
     Dosage: UNKNOWN
     Dates: start: 20060725, end: 20060808
  2. RABEPRAZOLE SODIUM [Suspect]
     Dosage: UNKNOWN
  3. PANTOPRAZOLE [Suspect]
     Indication: GASTROOESOPHAGEAL REFLUX DISEASE
     Dosage: UNKNOWN
  4. LOSEC I.V. [Suspect]
     Indication: GASTROOESOPHAGEAL REFLUX DISEASE
     Dosage: 40MG, FREQUENCY UNKNOWN
     Route: 048
     Dates: start: 20020101, end: 20060501
  5. LOSEC I.V. [Suspect]
     Dosage: UNKNOWN
     Route: 048
     Dates: start: 20060601
  6. OMEPRAZOLE [Suspect]
     Dosage: UNKNOWN
     Route: 042
     Dates: start: 20050505, end: 20060617

REACTIONS (2)
  - HYPOCALCAEMIA [None]
  - HYPOMAGNESAEMIA [None]
